FAERS Safety Report 12410358 (Version 4)
Quarter: 2016Q3

REPORT INFORMATION
  Report Type: Report from Study
  Country: US (occurrence: US)
  Receive Date: 20160527
  Receipt Date: 20160720
  Transmission Date: 20161109
  Serious: Yes (Hospitalization)
  Sender: FDA-Public Use
  Company Number: US-ROCHE-1765166

PATIENT
  Age: 69 Year
  Sex: Female
  Weight: 66.2 kg

DRUGS (3)
  1. IRINOTECAN [Suspect]
     Active Substance: IRINOTECAN
     Indication: COLORECTAL CANCER METASTATIC
     Dosage: LAST DOSE OF ADMINSTRATION 18/MAY/2016, 6 CYCLE
     Route: 042
     Dates: start: 20150609
  2. CETUXIMAB [Suspect]
     Active Substance: CETUXIMAB
     Indication: COLORECTAL CANCER METASTATIC
     Dosage: LAST DOSE OF ADMINSTRATION 18/MAY/2016, 6 CYCLE
     Route: 042
     Dates: start: 20150609
  3. VEMURAFENIB [Suspect]
     Active Substance: VEMURAFENIB
     Indication: COLORECTAL CANCER METASTATIC
     Dosage: LAST DOSE OF ADMINSTRATION 23/MAY/2016, 6 CYCLE
     Route: 048
     Dates: start: 20151130

REACTIONS (1)
  - Rectal haemorrhage [Recovering/Resolving]

NARRATIVE: CASE EVENT DATE: 20160523
